FAERS Safety Report 8197577-X (Version None)
Quarter: 2012Q1

REPORT INFORMATION
  Report Type: 
  Country: None (occurrence: None)
  Receive Date: 20120309
  Receipt Date: 20120229
  Transmission Date: 20120608
  Serious: Yes (Hospitalization)
  Sender: FDA-Public Use
  Company Number: AU-B.I. PHARMACEUTICALS,INC./RIDGEFIELD-2012-AU-00424AU

PATIENT
  Age: 83 Year
  Sex: Female

DRUGS (2)
  1. LASIX [Concomitant]
  2. PRADAXA [Suspect]

REACTIONS (5)
  - GASTROOESOPHAGEAL REFLUX DISEASE [None]
  - ORTHOSTATIC HYPOTENSION [None]
  - DYSPHAGIA [None]
  - DEHYDRATION [None]
  - DECREASED APPETITE [None]
